FAERS Safety Report 4306601-3 (Version None)
Quarter: 2004Q1

REPORT INFORMATION
  Report Type: 
  Country: None (occurrence: None)
  Receive Date: 20040225
  Receipt Date: 20031006
  Transmission Date: 20041129
  Serious: No
  Sender: FDA-Public Use
  Company Number: US-BRISTOL-MYERS SQUIBB COMPANY-12403580

PATIENT
  Age: 14 Year
  Sex: Female
  Weight: 57 kg

DRUGS (4)
  1. EXCEDRIN (MIGRAINE) [Suspect]
     Indication: MIGRAINE
     Route: 048
     Dates: start: 20030909, end: 20030910
  2. ALBUTEROL [Concomitant]
  3. ALLEGRA [Concomitant]
     Indication: MULTIPLE ALLERGIES
  4. TORADOL [Concomitant]
     Dates: start: 20030908

REACTIONS (1)
  - DRUG INEFFECTIVE [None]
